FAERS Safety Report 16027710 (Version 1)
Quarter: 2019Q1

REPORT INFORMATION
  Report Type: Spontaneous
  Country: US (occurrence: US)
  Receive Date: 20190304
  Receipt Date: 20190304
  Transmission Date: 20190418
  Serious: No
  Sender: FDA-Public Use
  Company Number: US-IMPAX LABORATORIES, LLC-2018-IPXL-00769

PATIENT
  Age: 82 Year
  Sex: Female
  Weight: 61 kg

DRUGS (4)
  1. PRAMIPEXOLE. [Concomitant]
     Active Substance: PRAMIPEXOLE
     Indication: PARKINSON^S DISEASE
     Dosage: 0.5 MG, 1 TABLET, FOUR TIMES A DAY
     Route: 048
     Dates: start: 2016
  2. RYTARY [Suspect]
     Active Substance: CARBIDOPA\LEVODOPA
     Dosage: 48.75/195 MG, ONE CAPSULE, EVERY FOUR HOURS
     Route: 048
  3. DONEPEZIL. [Concomitant]
     Active Substance: DONEPEZIL
     Indication: PARKINSON^S DISEASE
     Dosage: UNK
     Route: 065
  4. RYTARY [Suspect]
     Active Substance: CARBIDOPA\LEVODOPA
     Indication: PARKINSON^S DISEASE
     Dosage: 48.75/195 MG, ONE CAPSULE, FIVE TIMES DAILY
     Route: 048
     Dates: start: 201707

REACTIONS (4)
  - Gait disturbance [Not Recovered/Not Resolved]
  - Anxiety [Unknown]
  - Freezing phenomenon [Not Recovered/Not Resolved]
  - Drug effect variable [Not Recovered/Not Resolved]

NARRATIVE: CASE EVENT DATE: 201707
